FAERS Safety Report 9327341 (Version 2)
Quarter: 2013Q3

REPORT INFORMATION
  Report Type: Spontaneous
  Country: US (occurrence: US)
  Receive Date: 20130604
  Receipt Date: 20130916
  Transmission Date: 20140515
  Serious: No
  Sender: FDA-Public Use
  Company Number: US-PFIZER INC-2013168178

PATIENT
  Age: 52 Year
  Sex: Female

DRUGS (1)
  1. XELJANZ [Suspect]
     Indication: RHEUMATOID ARTHRITIS
     Dosage: 5 MG, 2X/DAY
     Route: 048
     Dates: start: 20130514, end: 20130801

REACTIONS (6)
  - Headache [Unknown]
  - Chills [Unknown]
  - Hyperhidrosis [Unknown]
  - Pallor [Unknown]
  - Stomatitis [Recovered/Resolved]
  - Swollen tongue [Recovered/Resolved]
